FAERS Safety Report 5234301-4 (Version None)
Quarter: 2007Q1

REPORT INFORMATION
  Report Type: 
  Country: None (occurrence: None)
  Receive Date: 20070209
  Receipt Date: 20070201
  Transmission Date: 20070707
  Serious: Yes (Hospitalization)
  Sender: FDA-Public Use
  Company Number: FR-AVENTIS-200710428FR

PATIENT
  Age: 92 Year
  Sex: Male

DRUGS (2)
  1. LOVENOX [Suspect]
     Route: 058
     Dates: end: 20061222
  2. BACTRIM DS [Concomitant]
     Route: 048

REACTIONS (4)
  - ANAEMIA [None]
  - HAEMATOMA [None]
  - HYPOTENSION [None]
  - SYNCOPE [None]
